FAERS Safety Report 19094838 (Version 1)
Quarter: 2021Q2

REPORT INFORMATION
  Report Type: Report from Study
  Country: ES (occurrence: ES)
  Receive Date: 20210406
  Receipt Date: 20210406
  Transmission Date: 20210717
  Serious: Yes (Congenital Anomaly, Other)
  Sender: FDA-Public Use
  Company Number: ES-TEVA-2019-ES-1158559

PATIENT
  Sex: Female

DRUGS (2)
  1. COPAXONE [Suspect]
     Active Substance: GLATIRAMER ACETATE
     Indication: RELAPSING-REMITTING MULTIPLE SCLEROSIS
     Dosage: FRECUENCY: SUNDAY, THURSDAY AND TUESDAY AT NIGHT DRUG NOT DISCONTINUED DURING HER PREGNANCY
     Route: 064
     Dates: start: 201709
  2. VITAMIN D [Concomitant]
     Active Substance: VITAMIN D NOS
     Dosage: ONE PILL EVERY 15/20 DAYS

REACTIONS (3)
  - Congenital ureteropelvic junction obstruction [Not Recovered/Not Resolved]
  - Foetal growth restriction [Unknown]
  - Foetal exposure during pregnancy [Unknown]

NARRATIVE: CASE EVENT DATE: 2019
